FAERS Safety Report 4459985-X (Version None)
Quarter: 2004Q3

REPORT INFORMATION
  Report Type: 
  Country: None (occurrence: None)
  Receive Date: 20040928
  Receipt Date: 20030922
  Transmission Date: 20050211
  Serious: No
  Sender: FDA-Public Use
  Company Number: US-GLAXOSMITHKLINE-A0426903A

PATIENT
  Age: 68 Year
  Sex: Female

DRUGS (8)
  1. SEREVENT [Suspect]
     Indication: ASTHMA
     Dosage: 1PUFF TWICE PER DAY
     Route: 055
     Dates: start: 20030919
  2. THEOPHYLLINE [Concomitant]
  3. MEDROL [Concomitant]
  4. SULFA ANTIBIOTIC [Concomitant]
  5. PROTONIX [Concomitant]
  6. HEART MEDICATION [Concomitant]
  7. LASIX [Concomitant]
  8. POTASSIUM [Concomitant]

REACTIONS (3)
  - BRONCHOSPASM [None]
  - CONDITION AGGRAVATED [None]
  - DRUG INEFFECTIVE [None]
